FAERS Safety Report 17692672 (Version 1)
Quarter: 2020Q2

REPORT INFORMATION
  Report Type: Spontaneous
  Country: US (occurrence: US)
  Receive Date: 20200420
  Receipt Date: 20200420
  Transmission Date: 20200714
  Serious: No
  Sender: FDA-Public Use
  Company Number: None

PATIENT
  Age: 73 Year
  Sex: Female

DRUGS (1)
  1. TADALAFIL 20MG TAB [Suspect]
     Active Substance: TADALAFIL
     Indication: PULMONARY ARTERIAL HYPERTENSION
     Route: 048
     Dates: start: 202003

REACTIONS (6)
  - Dizziness [None]
  - Product substitution issue [None]
  - Hypersomnia [None]
  - Gait disturbance [None]
  - Lethargy [None]
  - Rash [None]

NARRATIVE: CASE EVENT DATE: 20200420
